FAERS Safety Report 7384408-0 (Version None)
Quarter: 2011Q1

REPORT INFORMATION
  Report Type: 
  Country: None (occurrence: None)
  Receive Date: 20110330
  Receipt Date: 20110322
  Transmission Date: 20110831
  Serious: Yes (Other)
  Sender: FDA-Public Use
  Company Number: US-JNJFOC-20110309528

PATIENT
  Age: 28 Year
  Sex: Male

DRUGS (1)
  1. EXTRA STRENGTH TYLENOL PM [Suspect]
     Indication: INTENTIONAL OVERDOSE
     Route: 048

REACTIONS (1)
  - INTENTIONAL OVERDOSE [None]
